FAERS Safety Report 6892929-X (Version None)
Quarter: 2010Q3

REPORT INFORMATION
  Report Type: 
  Country: None (occurrence: None)
  Receive Date: 20100731
  Receipt Date: 20081118
  Transmission Date: 20110219
  Serious: Yes (Hospitalization, Other)
  Sender: FDA-Public Use
  Company Number: US-PFIZER INC-2008050183

PATIENT
  Sex: Male
  Weight: 97.727 kg

DRUGS (4)
  1. NORVASC [Suspect]
     Indication: HYPERTENSION
     Dates: start: 19890101
  2. CLARITIN [Concomitant]
  3. WARFARIN SODIUM [Concomitant]
  4. PANTOPRAZOLE [Concomitant]

REACTIONS (4)
  - ATRIAL FIBRILLATION [None]
  - BENIGN PROSTATIC HYPERPLASIA [None]
  - BRADYCARDIA [None]
  - HYPOTENSION [None]
